FAERS Safety Report 14109993 (Version 1)
Quarter: 2017Q4

REPORT INFORMATION
  Report Type: Spontaneous
  Country: US (occurrence: US)
  Receive Date: 20171020
  Receipt Date: 20171020
  Transmission Date: 20180321
  Serious: No
  Sender: FDA-Public Use
  Company Number: US-TEVA-723781USA

PATIENT
  Sex: Female

DRUGS (1)
  1. TRI-LO-SPRINTEC [Suspect]
     Active Substance: ETHINYL ESTRADIOL\NORGESTIMATE

REACTIONS (4)
  - Metrorrhagia [Unknown]
  - Acne [Unknown]
  - Pruritus generalised [Unknown]
  - Headache [Unknown]
